FAERS Safety Report 9936858 (Version 1)
Quarter: 2014Q1

REPORT INFORMATION
  Report Type: Spontaneous
  Country: US (occurrence: None)
  Receive Date: 20140114
  Receipt Date: 20140114
  Transmission Date: 20141002
  Serious: Yes (Other)
  Sender: FDA-Public Use
  Company Number: E2020-12565-SPO-US

PATIENT
  Age: 60 Year
  Sex: Female

DRUGS (2)
  1. ARICEPT [Suspect]
     Indication: PRODUCT USED FOR UNKNOWN INDICATION
     Route: 048
  2. ENBREL [Suspect]
     Indication: RHEUMATOID ARTHRITIS
     Dates: start: 20081022, end: 200904

REACTIONS (3)
  - Cataract [None]
  - Visual impairment [None]
  - Psoriasis [None]
